FAERS Safety Report 4708020-4 (Version None)
Quarter: 2005Q2

REPORT INFORMATION
  Report Type: 
  Country: None (occurrence: None)
  Receive Date: 20050629
  Receipt Date: 20050317
  Transmission Date: 20051028
  Serious: No
  Sender: FDA-Public Use
  Company Number: 05P-163-0294457-00

PATIENT
  Age: 70 Year
  Sex: Female
  Weight: 54.4316 kg

DRUGS (6)
  1. HUMIRA [Suspect]
     Indication: RHEUMATOID ARTHRITIS
     Dosage: SEE IMAGE
     Route: 058
     Dates: start: 20030101, end: 20040101
  2. HUMIRA [Suspect]
     Indication: RHEUMATOID ARTHRITIS
     Dosage: SEE IMAGE
     Route: 058
     Dates: start: 20040101
  3. OXYCODONE HCL [Concomitant]
  4. METHOTREXATE [Concomitant]
  5. GLUCOSAMINE [Concomitant]
  6. IRON [Concomitant]

REACTIONS (2)
  - DRUG EFFECT DECREASED [None]
  - NASOPHARYNGITIS [None]
